FAERS Safety Report 21924130 (Version 1)
Quarter: 2023Q1

REPORT INFORMATION
  Report Type: Spontaneous
  Country: BR (occurrence: BR)
  Receive Date: 20230130
  Receipt Date: 20230130
  Transmission Date: 20230418
  Serious: Yes (Hospitalization)
  Sender: FDA-Public Use
  Company Number: BR-JNJFOC-20230148682

PATIENT
  Age: 55 Year
  Sex: Male
  Weight: 88 kg

DRUGS (1)
  1. REMICADE [Suspect]
     Active Substance: INFLIXIMAB
     Indication: Axial spondyloarthritis
     Route: 041
     Dates: start: 2020, end: 20210323

REACTIONS (2)
  - Disseminated tuberculosis [Recovering/Resolving]
  - Off label use [Unknown]

NARRATIVE: CASE EVENT DATE: 20200101
